FAERS Safety Report 18213477 (Version 1)
Quarter: 2020Q3

REPORT INFORMATION
  Report Type: Spontaneous
  Country: US (occurrence: US)
  Receive Date: 20200831
  Receipt Date: 20200831
  Transmission Date: 20201103
  Serious: No
  Sender: FDA-Public Use
  Company Number: US-PFIZER INC-2020335373

PATIENT
  Age: 49 Year
  Sex: Female

DRUGS (5)
  1. L?METHYLFOLATE CALCIUM [Concomitant]
     Active Substance: LEVOMEFOLATE CALCIUM
     Dosage: UNK (15 MG)
  2. FERROUS SULFATE. [Concomitant]
     Active Substance: FERROUS SULFATE
     Dosage: UNK(28 MG)
  3. XELJANZ [Suspect]
     Active Substance: TOFACITINIB CITRATE
     Indication: PSORIATIC ARTHROPATHY
  4. PRILOSEC [Concomitant]
     Active Substance: OMEPRAZOLE MAGNESIUM
     Dosage: UNK (20 MG)
  5. XELJANZ [Suspect]
     Active Substance: TOFACITINIB CITRATE
     Indication: PSORIASIS
     Dosage: 5 MG, 2X/DAY
     Route: 048
     Dates: start: 201712, end: 2020

REACTIONS (8)
  - Night sweats [Unknown]
  - Oropharyngeal pain [Unknown]
  - Insomnia [Unknown]
  - Product use in unapproved indication [Unknown]
  - Dyspepsia [Unknown]
  - Off label use [Unknown]
  - Malaise [Unknown]
  - Intentional product use issue [Unknown]
